FAERS Safety Report 17162919 (Version 2)
Quarter: 2020Q1

REPORT INFORMATION
  Report Type: Spontaneous
  Country: US (occurrence: US)
  Receive Date: 20191217
  Receipt Date: 20200319
  Transmission Date: 20200409
  Serious: Yes (Other)
  Sender: FDA-Public Use
  Company Number: US-GILEAD-2019-0442871

PATIENT
  Age: 64 Year
  Sex: Male
  Weight: 92.52 kg

DRUGS (25)
  1. LOSARTAN. [Concomitant]
     Active Substance: LOSARTAN
  2. HYDROCHLOROTHIAZIDE. [Concomitant]
     Active Substance: HYDROCHLOROTHIAZIDE
  3. METOCLOPRAMIDE. [Concomitant]
     Active Substance: METOCLOPRAMIDE
  4. TRIAMCINOLONE ACETONIDE. [Concomitant]
     Active Substance: TRIAMCINOLONE ACETONIDE
  5. SYNTHROID [Concomitant]
     Active Substance: LEVOTHYROXINE SODIUM
  6. NORVASC [Concomitant]
     Active Substance: AMLODIPINE BESYLATE
  7. LEVAQUIN [Concomitant]
     Active Substance: LEVOFLOXACIN
  8. METRONIDAZOLE. [Concomitant]
     Active Substance: METRONIDAZOLE
  9. COZAAR [Concomitant]
     Active Substance: LOSARTAN POTASSIUM
  10. CHOLECALCIFEROL [Concomitant]
     Active Substance: CHOLECALCIFEROL
  11. LISINOPRIL. [Concomitant]
     Active Substance: LISINOPRIL
  12. CIALIS [Concomitant]
     Active Substance: TADALAFIL
  13. VITAMIN D2 [Concomitant]
     Active Substance: ERGOCALCIFEROL
  14. BACLOFEN. [Concomitant]
     Active Substance: BACLOFEN
  15. HYDRODIURIL [Concomitant]
     Active Substance: HYDROCHLOROTHIAZIDE
  16. AMOXICILLIN. [Concomitant]
     Active Substance: AMOXICILLIN
  17. HEPARIN [Concomitant]
     Active Substance: HEPARIN SODIUM
  18. ATRIPLA [Suspect]
     Active Substance: EFAVIRENZ\EMTRICITABINE\TENOFOVIR DISOPROXIL FUMARATE
     Indication: HIV INFECTION
     Dosage: 1 DOSAGE FORM, QD
     Route: 048
     Dates: start: 200704, end: 20181001
  19. MUPIROCIN. [Concomitant]
     Active Substance: MUPIROCIN
  20. LIPITOR [Concomitant]
     Active Substance: ATORVASTATIN CALCIUM
  21. TAMSULOSIN [Concomitant]
     Active Substance: TAMSULOSIN
  22. CLINDAMYCIN. [Concomitant]
     Active Substance: CLINDAMYCIN
  23. FONDAPARINUX SODIUM. [Concomitant]
     Active Substance: FONDAPARINUX SODIUM
  24. BIKTARVY [Concomitant]
     Active Substance: BICTEGRAVIR SODIUM\EMTRICITABINE\TENOFOVIR ALAFENAMIDE FUMARATE
     Dosage: UNK UNK, QD
     Dates: start: 20181001
  25. CYCLOBENZAPRINE. [Concomitant]
     Active Substance: CYCLOBENZAPRINE

REACTIONS (11)
  - Fanconi syndrome acquired [Not Recovered/Not Resolved]
  - Osteoporosis [Not Recovered/Not Resolved]
  - Emotional distress [Unknown]
  - Osteopenia [Not Recovered/Not Resolved]
  - Economic problem [Unknown]
  - Acute kidney injury [Unknown]
  - Pain [Unknown]
  - Anxiety [Unknown]
  - Spinal compression fracture [Not Recovered/Not Resolved]
  - Osteomalacia [Not Recovered/Not Resolved]
  - Anhedonia [Unknown]

NARRATIVE: CASE EVENT DATE: 2018
